FAERS Safety Report 4583055-3 (Version None)
Quarter: 2005Q1

REPORT INFORMATION
  Report Type: 
  Country: None (occurrence: None)
  Receive Date: 20050125
  Receipt Date: 20041116
  Transmission Date: 20050727
  Serious: No
  Sender: FDA-Public Use
  Company Number: US_0411108426

PATIENT
  Age: 59 Year
  Sex: Female
  Weight: 68 kg

DRUGS (8)
  1. FORTEO [Suspect]
     Indication: OSTEOPOROSIS
     Dates: start: 20041023
  2. VICODIN [Concomitant]
  3. RISPERDAL [Concomitant]
  4. ATIVAN [Concomitant]
  5. EFFEXOR [Concomitant]
  6. FLEXERIL [Concomitant]
  7. OXYCONTIN [Concomitant]
  8. MORPHINE [Concomitant]

REACTIONS (10)
  - ANOREXIA [None]
  - APHAGIA [None]
  - DEHYDRATION [None]
  - DIARRHOEA [None]
  - EATING DISORDER SYMPTOM [None]
  - NAUSEA [None]
  - PHARYNGOLARYNGEAL PAIN [None]
  - SENSATION OF FOREIGN BODY [None]
  - THROAT TIGHTNESS [None]
  - WEIGHT DECREASED [None]
